FAERS Safety Report 4672456-0 (Version None)
Quarter: 2005Q2

REPORT INFORMATION
  Report Type: 
  Country: None (occurrence: None)
  Receive Date: 20050523
  Receipt Date: 20050517
  Transmission Date: 20051028
  Serious: Yes (Hospitalization)
  Sender: FDA-Public Use
  Company Number: 05-05-0854

PATIENT
  Age: 65 Year
  Sex: Female

DRUGS (1)
  1. CLOZAPINE [Suspect]
     Indication: SCHIZOPHRENIA
     Dosage: 150-300MG QD ORAL
     Route: 048
     Dates: start: 19980501

REACTIONS (1)
  - CEREBROVASCULAR ACCIDENT [None]
